FAERS Safety Report 8567725 (Version 2)
Quarter: 2013Q3

REPORT INFORMATION
  Report Type: Report from Study
  Country: US (occurrence: US)
  Receive Date: 20120517
  Receipt Date: 20130718
  Transmission Date: 20140515
  Serious: No
  Sender: FDA-Public Use
  Company Number: US-ELI_LILLY_AND_COMPANY-US201203008432

PATIENT
  Sex: Female

DRUGS (10)
  1. TERIPARATIDE [Suspect]
     Indication: OSTEOPOROSIS
     Dosage: 20 UG, QD
     Dates: start: 20120309
  2. TERIPARATIDE [Suspect]
     Dosage: 20 UG, QD
     Dates: start: 20120309
  3. TERIPARATIDE [Suspect]
     Dosage: 20 UG, QD
     Dates: end: 201207
  4. DILTIAZEM HCL [Concomitant]
     Dosage: 240 MG, QD
     Route: 065
  5. MULTAQ [Concomitant]
     Dosage: 400 MG, QD
     Route: 065
  6. TEMAZEPAM [Concomitant]
     Dosage: 30 MG, PRN
     Route: 065
  7. LORAZEPAM [Concomitant]
     Dosage: 0.5 MG, PRN
     Route: 065
  8. CALCIUM +D3 [Concomitant]
     Dosage: UNK, QD
     Route: 065
  9. CRESTOR [Concomitant]
     Dosage: 5 MG, QOD
     Route: 065
  10. COUMADIN [Concomitant]
     Dosage: UNK

REACTIONS (6)
  - Memory impairment [Unknown]
  - Anxiety [Unknown]
  - Blood pressure abnormal [Unknown]
  - Pain [Unknown]
  - Fall [Unknown]
  - Contusion [Unknown]
